FAERS Safety Report 8012626-7 (Version None)
Quarter: 2011Q4

REPORT INFORMATION
  Report Type: 
  Country: None (occurrence: None)
  Receive Date: 20111222
  Receipt Date: 20111219
  Transmission Date: 20120403
  Serious: Yes (Hospitalization)
  Sender: FDA-Public Use
  Company Number: GER/UKI/11/0022392

PATIENT
  Age: 32 Year
  Sex: Male
  Weight: 61 kg

DRUGS (16)
  1. OMEPRAZOLE [Concomitant]
  2. PROPOFOL [Concomitant]
  3. VANCOMYCIN [Suspect]
     Indication: PRODUCT USED FOR UNKNOWN INDICATION
     Dosage: 1000 MG, 2 IN 1 D, INTRAVENOUS
     Route: 042
     Dates: start: 20111101, end: 20111107
  4. VALPROATE SODIUM [Suspect]
     Indication: PRODUCT USED FOR UNKNOWN INDICATION
     Dosage: 300 MG, 2 IN 1 D, INTRAVENOUS
     Route: 042
     Dates: start: 20111031, end: 20111103
  5. MIDAZOLAM HCL [Concomitant]
  6. MAGNESIUM SULPHATE (MAGNESIUM SULPHATE /01097001/) [Concomitant]
  7. MAGNESIUM (MAGNESIUM) [Concomitant]
  8. DOCUSATE (DOCUSATE) [Concomitant]
  9. FUROSEMIDE [Concomitant]
  10. METOCLOPRAMIDE [Concomitant]
  11. SENNA-MINT WAF [Concomitant]
  12. CHLORHEXIDINE GLUCONATE [Concomitant]
  13. PABRINEX (PARENTROVITE /00041801/) [Concomitant]
  14. ALFENTANIL [Concomitant]
  15. LEVETIRACETAM [Suspect]
     Indication: CONVULSION
     Dosage: 250 MG, 2 IN 1 D
     Dates: start: 20111103, end: 20111103
  16. PRONTODERM (POLIHEXANIDE) [Concomitant]

REACTIONS (3)
  - DRUG RASH WITH EOSINOPHILIA AND SYSTEMIC SYMPTOMS [None]
  - HEPATITIS [None]
  - TUBULOINTERSTITIAL NEPHRITIS [None]
